FAERS Safety Report 8583198-3 (Version None)
Quarter: 2012Q3

REPORT INFORMATION
  Report Type: 
  Country: None (occurrence: None)
  Receive Date: 20120809
  Receipt Date: 20120731
  Transmission Date: 20120928
  Serious: Yes (Hospitalization)
  Sender: FDA-Public Use
  Company Number: US-ABBOTT-12P-163-0963367-00

PATIENT
  Sex: Female

DRUGS (1)
  1. HUMIRA [Suspect]
     Indication: CROHN'S DISEASE
     Route: 058
     Dates: start: 20110801

REACTIONS (8)
  - FEELING ABNORMAL [None]
  - LOCALISED INFECTION [None]
  - DEHYDRATION [None]
  - CELLULITIS [None]
  - WOUND SECRETION [None]
  - ERYTHEMA [None]
  - GAIT DISTURBANCE [None]
  - OEDEMA PERIPHERAL [None]
